FAERS Safety Report 13388541 (Version 2)
Quarter: 2019Q3

REPORT INFORMATION
  Report Type: Report from Study
  Country: JP (occurrence: JP)
  Receive Date: 20170330
  Receipt Date: 20190916
  Transmission Date: 20191004
  Serious: Yes (Other)
  Sender: FDA-Public Use
  Company Number: JP-CELGENEUS-JPN-2015102399

PATIENT
  Age: 67 Year
  Sex: Male
  Weight: 63.5 kg

DRUGS (19)
  1. KALLIDINOGENASE [Concomitant]
     Active Substance: KALLIDINOGENASE
     Indication: AGE-RELATED MACULAR DEGENERATION
     Route: 048
     Dates: start: 201305
  2. BENDAMUSTINE [Concomitant]
     Active Substance: BENDAMUSTINE
     Indication: OCULAR LYMPHOMA
     Dosage: 190 MILLIGRAM
     Route: 065
     Dates: start: 20160906
  3. RITUXIMAB. [Suspect]
     Active Substance: RITUXIMAB
     Indication: B-CELL LYMPHOMA
     Dosage: 375 MILLIGRAM/SQ. METER
     Route: 041
     Dates: start: 20141003
  4. TERBINAFINE HYDROCHLORIDE. [Concomitant]
     Active Substance: TERBINAFINE HYDROCHLORIDE
     Indication: TINEA INFECTION
     Dosage: 125 MILLIGRAM
     Route: 048
     Dates: start: 20151005
  5. CC-5013 [Suspect]
     Active Substance: LENALIDOMIDE
     Indication: B-CELL LYMPHOMA
     Dosage: 20 MILLIGRAM
     Route: 048
     Dates: start: 20141004
  6. CC-5013 [Suspect]
     Active Substance: LENALIDOMIDE
     Dosage: 5 MILLIGRAM
     Route: 048
     Dates: start: 20150526, end: 20150615
  7. RITUXIMAB. [Suspect]
     Active Substance: RITUXIMAB
     Dosage: 610 MILLIGRAM/SQ. METER
     Route: 041
     Dates: start: 20160906
  8. PREDNISORONE [Concomitant]
     Indication: ECZEMA
     Dosage: 10 MILLIGRAM
     Route: 048
     Dates: start: 20141215, end: 20151026
  9. HIRUDOID [Concomitant]
     Active Substance: GLYCOSAMINOGLYCANS
     Indication: ECZEMA
     Route: 065
     Dates: start: 20141031
  10. HYDROCORTISONE BUTYRATE. [Concomitant]
     Active Substance: HYDROCORTISONE BUTYRATE
     Indication: ECZEMA
     Route: 065
     Dates: start: 20141031
  11. RITUXIMAB. [Suspect]
     Active Substance: RITUXIMAB
     Dosage: 375 MILLIGRAM/SQ. METER
     Route: 041
     Dates: start: 20150427, end: 20150615
  12. HYDROCORTISONE BUTYRATE. [Concomitant]
     Active Substance: HYDROCORTISONE BUTYRATE
     Indication: PRURITUS
  13. CLARITHROMYCIN. [Concomitant]
     Active Substance: CLARITHROMYCIN
     Indication: SINUSITIS
     Dosage: 200 MILLIGRAM
     Route: 048
     Dates: start: 20150703
  14. CARBOCISTEINE [Concomitant]
     Active Substance: CARBOCYSTEINE
     Indication: SINUSITIS
     Dosage: 4500 MILLIGRAM
     Route: 048
     Dates: start: 20150703
  15. HIRUDOID [Concomitant]
     Active Substance: GLYCOSAMINOGLYCANS
     Indication: PRURITUS
  16. LEVOCETIRIZINE HYDROCHLORIDE [Concomitant]
     Active Substance: LEVOCETIRIZINE HYDROCHLORIDE
     Indication: ECZEMA
     Dosage: 5 MILLIGRAM
     Route: 048
     Dates: start: 20141114, end: 20151026
  17. CYANOCOBALAMIN. [Concomitant]
     Active Substance: CYANOCOBALAMIN
     Indication: AGE-RELATED MACULAR DEGENERATION
     Dosage: ADEQUATE
     Route: 065
     Dates: start: 201305
  18. GATIFLOXACIN HYDRATE [Concomitant]
     Indication: AGE-RELATED MACULAR DEGENERATION
     Dosage: ADEQUATE
     Route: 065
     Dates: start: 201305
  19. METHOTREXATE. [Concomitant]
     Active Substance: METHOTREXATE
     Indication: LYMPHOMA
     Route: 050
     Dates: start: 201506

REACTIONS (1)
  - Adenocarcinoma gastric [Recovered/Resolved]

NARRATIVE: CASE EVENT DATE: 20151005
